FAERS Safety Report 12413705 (Version 2)
Quarter: 2016Q2

REPORT INFORMATION
  Report Type: Spontaneous
  Country: MX (occurrence: MX)
  Receive Date: 20160527
  Receipt Date: 20160616
  Transmission Date: 20160815
  Serious: Yes (Death, Hospitalization)
  Sender: FDA-Public Use
  Company Number: MX-SA-2016SA101472

PATIENT
  Sex: Male

DRUGS (1)
  1. VANDETANIB. [Suspect]
     Active Substance: VANDETANIB
     Indication: PRODUCT USED FOR UNKNOWN INDICATION
     Route: 048

REACTIONS (9)
  - Death [Fatal]
  - Metastases to bone [Fatal]
  - Arthralgia [Fatal]
  - Metastases to lung [Fatal]
  - Dyspnoea [Fatal]
  - Diarrhoea [Fatal]
  - Neoplasm [Fatal]
  - Amnesia [Fatal]
  - Abasia [Fatal]
